FAERS Safety Report 7071402-2 (Version None)
Quarter: 2010Q4

REPORT INFORMATION
  Report Type: 
  Country: None (occurrence: None)
  Receive Date: 20101029
  Receipt Date: 20100310
  Transmission Date: 20110411
  Serious: No
  Sender: FDA-Public Use
  Company Number: A0763607A

PATIENT
  Age: 73 Year
  Sex: Female

DRUGS (19)
  1. ADVAIR DISKUS 100/50 [Suspect]
     Indication: ASTHMA
     Dosage: 1PUFF PER DAY
     Route: 055
     Dates: start: 20010101
  2. NEXIUM [Concomitant]
  3. SYNTHROID [Concomitant]
  4. DILTIAZEM [Concomitant]
  5. LISINOPRIL [Concomitant]
  6. EVISTA [Concomitant]
  7. SIMVASTATIN [Concomitant]
  8. METROGEL [Concomitant]
  9. MOBIC [Concomitant]
  10. ASPIRIN [Concomitant]
  11. VITAMINS [Concomitant]
  12. ZYRTEC [Concomitant]
  13. ALBUTEROL [Concomitant]
  14. PATANOL [Concomitant]
  15. VALIUM [Concomitant]
  16. KLARON [Concomitant]
  17. FLUTICASONE PROPIONATE [Concomitant]
  18. NASONEX [Concomitant]
  19. ASTELIN [Concomitant]

REACTIONS (4)
  - HALO VISION [None]
  - PULMONARY FUNCTION TEST DECREASED [None]
  - SINUSITIS [None]
  - VISUAL IMPAIRMENT [None]
